FAERS Safety Report 7245418-7 (Version None)
Quarter: 2011Q1

REPORT INFORMATION
  Report Type: 
  Country: None (occurrence: None)
  Receive Date: 20110126
  Receipt Date: 20110121
  Transmission Date: 20110831
  Serious: Yes (Death)
  Sender: FDA-Public Use
  Company Number: CN-BRACCO-000197

PATIENT
  Age: 46 Year
  Sex: Male

DRUGS (2)
  1. MULTIHANCE [Suspect]
     Indication: NUCLEAR MAGNETIC RESONANCE IMAGING BRAIN
     Route: 042
     Dates: start: 20110109, end: 20110109
  2. MULTIHANCE [Suspect]
     Indication: PITUITARY TUMOUR
     Route: 042
     Dates: start: 20110109, end: 20110109

REACTIONS (1)
  - ANAPHYLACTIC SHOCK [None]
